FAERS Safety Report 10486332 (Version 2)
Quarter: 2015Q1

REPORT INFORMATION
  Report Type: Spontaneous
  Country: US (occurrence: US)
  Receive Date: 20141001
  Receipt Date: 20150209
  Transmission Date: 20150720
  Serious: Yes (Other)
  Sender: FDA-Public Use
  Company Number: US-ROCHE-1468360

PATIENT
  Sex: Female
  Weight: 53.57 kg

DRUGS (2)
  1. XELODA [Suspect]
     Active Substance: CAPECITABINE
     Dosage: 2 TABS
     Route: 048
     Dates: start: 20140610
  2. XELODA [Suspect]
     Active Substance: CAPECITABINE
     Indication: BREAST CANCER
     Route: 048
     Dates: start: 20140606

REACTIONS (3)
  - Injury [Unknown]
  - Fall [Unknown]
  - Disease progression [Unknown]
